FAERS Safety Report 7294776-6 (Version None)
Quarter: 2011Q1

REPORT INFORMATION
  Report Type: 
  Country: None (occurrence: None)
  Receive Date: 20110216
  Receipt Date: 20110210
  Transmission Date: 20110831
  Serious: Yes (Life-Threatening)
  Sender: FDA-Public Use
  Company Number: JP-ASTELLAS-2010JP007661

PATIENT
  Sex: Male

DRUGS (4)
  1. PROTOPIC [Suspect]
     Indication: LICHEN PLANUS
     Dosage: UNK
     Route: 061
     Dates: start: 20080801, end: 20091001
  2. OMEPRAL [Concomitant]
     Dosage: 20 MG, UID/QD
     Route: 048
  3. CONIEL [Concomitant]
     Indication: HYPERTENSION
     Dosage: 2 MG, UID/QD
     Route: 048
  4. BLOPRESS [Concomitant]
     Indication: HYPERTENSION
     Dosage: 4 MG, UID/QD
     Route: 048

REACTIONS (1)
  - LIP NEOPLASM MALIGNANT STAGE UNSPECIFIED [None]
